FAERS Safety Report 22638689 (Version 1)
Quarter: 2023Q2

REPORT INFORMATION
  Report Type: Spontaneous
  Country: US (occurrence: US)
  Receive Date: 20230626
  Receipt Date: 20230626
  Transmission Date: 20230722
  Serious: No
  Sender: FDA-Public Use
  Company Number: US-ALK-ABELLO A/S-2023AA002090

PATIENT

DRUGS (3)
  1. HISTAMINE PHOSPHATE [Suspect]
     Active Substance: HISTAMINE PHOSPHATE
     Indication: Skin test
  2. LISINOPRIL [Concomitant]
     Active Substance: LISINOPRIL
  3. FLONASE [Concomitant]
     Active Substance: FLUTICASONE PROPIONATE

REACTIONS (1)
  - False negative investigation result [Unknown]

NARRATIVE: CASE EVENT DATE: 20230301
